FAERS Safety Report 24328022 (Version 1)
Quarter: 2024Q3

REPORT INFORMATION
  Report Type: Spontaneous
  Country: US (occurrence: None)
  Receive Date: 20240916
  Receipt Date: 20240916
  Transmission Date: 20241017
  Serious: Yes (Life-Threatening, Hospitalization, Disabling, Other)
  Sender: Public
  Company Number: None

PATIENT
  Age: 62 Year
  Sex: Male
  Weight: 83.25 kg

DRUGS (5)
  1. DIETARY SUPPLEMENT [Suspect]
     Active Substance: DIETARY SUPPLEMENT
     Indication: Arthritis
     Dosage: 1 TABLET DAILY ORAL
     Route: 048
     Dates: start: 20240224, end: 20240630
  2. DICLOFENAC [Suspect]
     Active Substance: DICLOFENAC
  3. METOPROLOL TARTRATE [Concomitant]
     Active Substance: METOPROLOL TARTRATE
  4. ELIQUIS [Concomitant]
     Active Substance: APIXABAN
  5. VITAMINS [Concomitant]
     Active Substance: VITAMINS

REACTIONS (2)
  - Atrial fibrillation [None]
  - Adulterated product [None]

NARRATIVE: CASE EVENT DATE: 20240712
